FAERS Safety Report 8935192 (Version 2)
Quarter: 2013Q2

REPORT INFORMATION
  Report Type: Spontaneous
  Country: DE (occurrence: DE)
  Receive Date: 20121129
  Receipt Date: 20130423
  Transmission Date: 20140414
  Serious: Yes (Other)
  Sender: FDA-Public Use
  Company Number: DE-OTSUKA-EU-2012-10317

PATIENT
  Sex: Male

DRUGS (7)
  1. PLETAL [Suspect]
     Indication: PERIPHERAL ARTERIAL OCCLUSIVE DISEASE
     Dosage: 100 MG MILLIGRAM(S), QD
     Route: 048
     Dates: start: 2012
  2. VALPROIC ACID [Concomitant]
     Indication: EPILEPSY
  3. RAMIPRIL [Concomitant]
  4. ACETYLSALICYLIC ACID [Concomitant]
  5. BISOPROLOL [Concomitant]
  6. METFORMIN [Concomitant]
  7. AMLODIPIN [Concomitant]
     Dosage: UNK UNK, DAILY DOSE

REACTIONS (1)
  - Grand mal convulsion [Unknown]
